FAERS Safety Report 16058094 (Version 3)
Quarter: 2019Q4

REPORT INFORMATION
  Report Type: Spontaneous
  Country: CN (occurrence: CN)
  Receive Date: 20190311
  Receipt Date: 20191107
  Transmission Date: 20200122
  Serious: Yes (Other)
  Sender: FDA-Public Use
  Company Number: CN-ASTRAZENECA-2019SE37776

PATIENT
  Age: 31777 Day
  Sex: Female
  Weight: 45.5 kg

DRUGS (1)
  1. PULMICORT RESPULES [Suspect]
     Active Substance: BUDESONIDE
     Indication: ASTHMA
     Route: 055
     Dates: start: 20190223, end: 20190223

REACTIONS (4)
  - Hyperhidrosis [Unknown]
  - Asthma [Unknown]
  - Oxygen saturation decreased [Unknown]
  - Respiratory depression [Not Recovered/Not Resolved]

NARRATIVE: CASE EVENT DATE: 20190223
